FAERS Safety Report 8390740-4 (Version None)
Quarter: 2012Q1

REPORT INFORMATION
  Report Type: 
  Country: None (occurrence: None)
  Receive Date: 20120323
  Receipt Date: 20110308
  Transmission Date: 20120608
  Serious: Yes (Hospitalization)
  Sender: FDA-Public Use
  Company Number: 163-21880-11031152

PATIENT
  Age: 66 Year
  Sex: Female
  Weight: 65.3 kg

DRUGS (2)
  1. REVLIMID [Suspect]
     Indication: MYELODYSPLASTIC SYNDROME
     Dosage: 10 MG, 1 IN 1 D, PO
     Route: 048
     Dates: start: 20101018
  2. ANTIBIOTICS (ANTIBIOTICS) [Concomitant]

REACTIONS (1)
  - PYREXIA [None]
